FAERS Safety Report 8335916-7 (Version None)
Quarter: 2012Q2

REPORT INFORMATION
  Report Type: 
  Country: None (occurrence: None)
  Receive Date: 20120504
  Receipt Date: 20120430
  Transmission Date: 20120825
  Serious: No
  Sender: FDA-Public Use
  Company Number: US-PFIZER INC-2012089325

PATIENT
  Sex: Female
  Weight: 111 kg

DRUGS (15)
  1. LYRICA [Suspect]
     Indication: ARTHRITIS
  2. PREDNISONE [Concomitant]
     Indication: ARTHRITIS
     Dosage: 5 MG, 2X/DAY
  3. LEVOTHYROXINE [Concomitant]
     Indication: THYROID DISORDER
     Dosage: 0.175 MG, DAILY
  4. VITAMIN D [Concomitant]
     Indication: ARTHRITIS
     Dosage: UNK
  5. BONIVA [Concomitant]
     Indication: ARTHRITIS
     Dosage: 150 MG, MONTHLY
  6. VIMOVO [Concomitant]
     Indication: ARTHRITIS
     Dosage: 500/20 MG TWO TIMES A DAY
  7. MULTI-VITAMINS [Concomitant]
     Dosage: UNKNOWN DOSE DAILY
  8. LYRICA [Suspect]
     Indication: FIBROMYALGIA
     Dosage: 300 MG, 1X/DAY
     Route: 048
     Dates: start: 20060101
  9. PARAFON FORTE DSC [Concomitant]
     Indication: ARTHRITIS
     Dosage: 500 MG, 2X/DAY
  10. PREDNISONE [Concomitant]
     Indication: SWELLING
  11. BONIVA [Concomitant]
     Indication: BONE LOSS
  12. ZOLOFT [Suspect]
     Indication: DEPRESSION
     Dosage: 50 MG, 2X/DAY
  13. METHOTREXATE [Concomitant]
     Indication: ARTHRITIS
     Dosage: 2.5 MG, 2X/WEEK
  14. HUMIRA [Concomitant]
     Indication: ARTHRITIS
     Dosage: 40MG/0.8 ML TWO TIMES A MONTH
  15. FOLIC ACID [Concomitant]
     Indication: ARTHRITIS
     Dosage: 1000 MG, 1X/DAY

REACTIONS (1)
  - PAIN [None]
